FAERS Safety Report 5367917-5 (Version None)
Quarter: 2007Q2

REPORT INFORMATION
  Report Type: 
  Country: None (occurrence: None)
  Receive Date: 20070622
  Receipt Date: 20070614
  Transmission Date: 20071010
  Serious: Yes (Hospitalization)
  Sender: FDA-Public Use
  Company Number: US-AMGEN-STX229667

PATIENT
  Sex: Female

DRUGS (2)
  1. ENBREL [Suspect]
     Indication: RHEUMATOID ARTHRITIS
     Route: 058
     Dates: start: 20030312
  2. UNKNOWN [Concomitant]
     Route: 048
     Dates: start: 19990101

REACTIONS (3)
  - FALL [None]
  - KNEE ARTHROPLASTY [None]
  - PELVIC FRACTURE [None]
